FAERS Safety Report 11214426 (Version 1)
Quarter: 2015Q2

REPORT INFORMATION
  Report Type: Spontaneous
  Country: US (occurrence: US)
  Receive Date: 20150624
  Receipt Date: 20150624
  Transmission Date: 20150821
  Serious: No
  Sender: FDA-Public Use
  Company Number: US-ASTRAZENECA-2015SE59240

PATIENT
  Sex: Female

DRUGS (3)
  1. MOVANTIK [Suspect]
     Active Substance: NALOXEGOL OXALATE
     Indication: CONSTIPATION
     Dosage: DOSE AND FREQUENCY UNKNOWN
     Route: 048
     Dates: start: 201506
  2. OPIOID [Concomitant]
     Active Substance: UNSPECIFIED INGREDIENT
     Indication: RHEUMATOID ARTHRITIS
     Dosage: UNKNOWN
     Route: 065
  3. MOVANTIK [Suspect]
     Active Substance: NALOXEGOL OXALATE
     Indication: WHEELCHAIR USER
     Dosage: DOSE AND FREQUENCY UNKNOWN
     Route: 048
     Dates: start: 201506

REACTIONS (2)
  - Hypersensitivity [Unknown]
  - Abnormal behaviour [Unknown]
